FAERS Safety Report 5490816-5 (Version None)
Quarter: 2007Q4

REPORT INFORMATION
  Report Type: 
  Country: None (occurrence: None)
  Receive Date: 20071019
  Receipt Date: 20071010
  Transmission Date: 20080405
  Serious: Yes (Hospitalization)
  Sender: FDA-Public Use
  Company Number: JP-ROCHE-358105

PATIENT
  Age: 54 Year
  Sex: Male
  Weight: 65 kg

DRUGS (5)
  1. PEGASYS [Suspect]
     Route: 058
     Dates: start: 20031229, end: 20040128
  2. PEGASYS [Suspect]
     Route: 058
     Dates: start: 20040217, end: 20040616
  3. KENALOG [Concomitant]
     Indication: STOMATITIS
     Route: 061
     Dates: start: 20040103, end: 20040104
  4. LOXONIN [Concomitant]
     Indication: PROPHYLAXIS
     Route: 048
     Dates: start: 20031229, end: 20040206
  5. CYTOTEC [Concomitant]
     Route: 048
     Dates: start: 20031229, end: 20040206

REACTIONS (1)
  - CELLULITIS [None]
